FAERS Safety Report 5098065-X (Version None)
Quarter: 2006Q3

REPORT INFORMATION
  Report Type: 
  Country: None (occurrence: None)
  Receive Date: 20060906
  Receipt Date: 20060809
  Transmission Date: 20061208
  Serious: Yes (Other)
  Sender: FDA-Public Use
  Company Number: US-AMGEN-US189512

PATIENT
  Sex: Female

DRUGS (1)
  1. ENBREL [Suspect]
     Indication: PSORIATIC ARTHROPATHY
     Route: 058
     Dates: start: 20060301

REACTIONS (5)
  - CERVIX CARCINOMA [None]
  - DENTAL CARIES [None]
  - DIABETES MELLITUS [None]
  - NEOPLASM MALIGNANT [None]
  - UTERINE CANCER [None]
